FAERS Safety Report 5364781-5 (Version None)
Quarter: 2007Q2

REPORT INFORMATION
  Report Type: 
  Country: None (occurrence: None)
  Receive Date: 20070530
  Receipt Date: 20070110
  Transmission Date: 20071010
  Serious: Yes (Hospitalization)
  Sender: FDA-Public Use
  Company Number: 2007PV028190

PATIENT
  Age: 79 Year
  Sex: Male

DRUGS (7)
  1. BYETTA [Suspect]
     Indication: DIABETES MELLITUS NON-INSULIN-DEPENDENT
     Dosage: 5 MCG; BID;
     Dates: start: 20061204, end: 20061210
  2. ACTOS [Concomitant]
  3. ENALAPRIL MALEATE [Concomitant]
  4. GLYBURIDE [Concomitant]
  5. HYDROCHLOROTHIAZIDE [Concomitant]
  6. ASPIRIN [Concomitant]
  7. METFORMIN HCL [Concomitant]

REACTIONS (2)
  - EPIGASTRIC DISCOMFORT [None]
  - HYPERSENSITIVITY [None]
